FAERS Safety Report 10108510 (Version 1)
Quarter: 2014Q2

REPORT INFORMATION
  Report Type: Spontaneous
  Country: US (occurrence: US)
  Receive Date: 20140425
  Receipt Date: 20140425
  Transmission Date: 20141212
  Serious: No
  Sender: FDA-Public Use
  Company Number: US-BIOGENIDEC-2014BI038438

PATIENT
  Age: 65 Year
  Sex: Female

DRUGS (12)
  1. AVONEX [Suspect]
     Indication: MULTIPLE SCLEROSIS
     Route: 030
     Dates: start: 20120403
  2. AMLODIPINE BESYLATE [Concomitant]
  3. BUTALBITAL-APAP-CAFFEINE [Concomitant]
  4. CLONAZEPAM [Concomitant]
  5. DIOVAN HCT [Concomitant]
  6. ENSURE NUTRITION SHAKE [Concomitant]
  7. FLUOXETINE HCI [Concomitant]
  8. TEGRETOL [Concomitant]
  9. TIMOPTIC [Concomitant]
  10. TIZANIDINE HCI [Concomitant]
  11. XALATAN [Concomitant]
  12. ZZZQUIL [Concomitant]

REACTIONS (1)
  - Abdominal discomfort [Unknown]
